FAERS Safety Report 19146801 (Version 2)
Quarter: 2022Q1

REPORT INFORMATION
  Report Type: Spontaneous
  Country: US (occurrence: US)
  Receive Date: 20210416
  Receipt Date: 20220215
  Transmission Date: 20220424
  Serious: No
  Sender: FDA-Public Use
  Company Number: US-PFIZER INC-2021368911

PATIENT
  Age: 66 Year
  Sex: Female

DRUGS (2)
  1. IBRANCE [Suspect]
     Active Substance: PALBOCICLIB
     Indication: Breast neoplasm
     Dosage: 100 MG, DAILY FOR 21 DYS
     Route: 048
     Dates: start: 20180921
  2. IBRANCE [Suspect]
     Active Substance: PALBOCICLIB
     Indication: Intraductal proliferative breast lesion
     Dosage: 100 MG
     Dates: start: 20201222

REACTIONS (2)
  - White blood cell count decreased [Recovered/Resolved]
  - Fatigue [Unknown]
